FAERS Safety Report 12415537 (Version 1)
Quarter: 2016Q2

REPORT INFORMATION
  Report Type: Spontaneous
  Country: US (occurrence: US)
  Receive Date: 20160530
  Receipt Date: 20160530
  Transmission Date: 20160815
  Serious: No
  Sender: FDA-Public Use
  Company Number: US-PFIZER INC-2016260266

PATIENT
  Sex: Male
  Weight: 61 kg

DRUGS (1)
  1. QUILLIVANT XR [Suspect]
     Active Substance: METHYLPHENIDATE HYDROCHLORIDE
     Indication: ATTENTION DEFICIT/HYPERACTIVITY DISORDER
     Dosage: 8 ML, 1X/DAY
     Route: 048

REACTIONS (5)
  - Nausea [Unknown]
  - Product quality issue [Unknown]
  - Therapeutic response unexpected [Unknown]
  - Vomiting [Unknown]
  - Pre-existing condition improved [Unknown]
